FAERS Safety Report 22250488 (Version 1)
Quarter: 2023Q2

REPORT INFORMATION
  Report Type: Spontaneous
  Country: US (occurrence: None)
  Receive Date: 20230424
  Receipt Date: 20230424
  Transmission Date: 20230721
  Serious: Yes (unspecified)
  Sender: FDA-Public Use
  Company Number: None

PATIENT
  Age: 71 Year
  Sex: Female
  Weight: 80.55 kg

DRUGS (5)
  1. ORENCIA [Suspect]
     Active Substance: ABATACEPT
  2. MELOXICAM [Concomitant]
     Active Substance: MELOXICAM
  3. CALCIUM [Concomitant]
     Active Substance: CALCIUM
  4. MELATONIN [Concomitant]
     Active Substance: MELATONIN
  5. FAMOTIDINE [Concomitant]
     Active Substance: FAMOTIDINE

REACTIONS (2)
  - Hypertension [None]
  - Anxiety [None]

NARRATIVE: CASE EVENT DATE: 20230411
